FAERS Safety Report 25303376 (Version 1)
Quarter: 2025Q2

REPORT INFORMATION
  Report Type: Report from Study
  Country: US (occurrence: US)
  Receive Date: 20250512
  Receipt Date: 20250512
  Transmission Date: 20250716
  Serious: No
  Sender: MALLINCKRODT
  Company Number: US-MALLINCKRODT-MNK202502743

PATIENT
  Age: 76 Year
  Sex: Male

DRUGS (1)
  1. CORTICOTROPIN [Suspect]
     Active Substance: CORTICOTROPIN
     Indication: Psoriatic arthropathy
     Route: 058
     Dates: start: 20241202

REACTIONS (4)
  - Arthritis [Unknown]
  - Lung disorder [Unknown]
  - Dyspnoea [Unknown]
  - Herpes zoster [Not Recovered/Not Resolved]
